FAERS Safety Report 5854847-5 (Version None)
Quarter: 2008Q3

REPORT INFORMATION
  Report Type: 
  Country: None (occurrence: None)
  Receive Date: 20080822
  Receipt Date: 20080815
  Transmission Date: 20090109
  Serious: Yes (Other)
  Sender: FDA-Public Use
  Company Number: US-PFIZER INC-2008068545

PATIENT
  Age: 12 Year
  Sex: Male
  Weight: 48 kg

DRUGS (2)
  1. SOLU-MEDROL [Suspect]
     Indication: CROHN'S DISEASE
     Route: 042
  2. REMICADE [Concomitant]

REACTIONS (2)
  - CROHN'S DISEASE [None]
  - DRUG INEFFECTIVE [None]
